FAERS Safety Report 4750540-0 (Version None)
Quarter: 2005Q3

REPORT INFORMATION
  Report Type: 
  Country: None (occurrence: None)
  Receive Date: 20050823
  Receipt Date: 20050520
  Transmission Date: 20060218
  Serious: Yes (Hospitalization)
  Sender: FDA-Public Use
  Company Number: US-MERCK-0505USA02738

PATIENT
  Age: 55 Year
  Sex: Male
  Weight: 105 kg

DRUGS (11)
  1. VIOXX [Suspect]
     Indication: ARTHRALGIA
     Route: 048
     Dates: start: 20010801, end: 20040901
  2. VIOXX [Suspect]
     Indication: BACK PAIN
     Route: 048
     Dates: start: 20010801, end: 20040901
  3. ALTACE [Concomitant]
     Indication: HYPERTENSION
     Route: 065
     Dates: start: 19930101
  4. ALTACE [Concomitant]
     Indication: MYOCARDIAL INFARCTION
     Route: 065
     Dates: start: 19930101
  5. TOPROL-XL [Concomitant]
     Indication: HYPERTENSION
     Route: 065
     Dates: start: 19930101
  6. TOPROL-XL [Concomitant]
     Indication: MYOCARDIAL INFARCTION
     Route: 065
     Dates: start: 19930101
  7. ASPIRIN [Concomitant]
     Route: 065
  8. ZOCOR [Concomitant]
     Route: 065
     Dates: start: 19930101
  9. LORAZEPAM [Concomitant]
     Route: 065
  10. LEXAPRO [Concomitant]
     Route: 065
  11. ZYPREXA [Concomitant]
     Route: 065

REACTIONS (2)
  - COLLAPSE OF LUNG [None]
  - MYOCARDIAL INFARCTION [None]
